FAERS Safety Report 4286547-X (Version None)
Quarter: 2004Q1

REPORT INFORMATION
  Report Type: 
  Country: None (occurrence: None)
  Receive Date: 20040205
  Receipt Date: 20040128
  Transmission Date: 20041129
  Serious: No
  Sender: FDA-Public Use
  Company Number: 7295

PATIENT
  Age: 65 Year
  Sex: Female

DRUGS (1)
  1. PAMIDRONATE DISODIUM [Suspect]
     Indication: OSTEOPOROSIS

REACTIONS (2)
  - RENAL FAILURE [None]
  - RENAL TUBULAR NECROSIS [None]
